FAERS Safety Report 9515324 (Version 2)
Quarter: 2014Q1

REPORT INFORMATION
  Report Type: Spontaneous
  Country: US (occurrence: None)
  Receive Date: 20130305
  Receipt Date: 20140306
  Transmission Date: 20141002
  Serious: Yes (Hospitalization, Other)
  Sender: FDA-Public Use
  Company Number: 163-21880-12113978

PATIENT
  Age: 76 Year
  Sex: Male
  Weight: 92.5 kg

DRUGS (2)
  1. REVLIMID (LENALIDOMIDE) (25 MILLIGRAM, CAPSULES) [Suspect]
     Indication: PLASMA CELL MYELOMA
     Dosage: 10 MG, 21 IN 28 D, PO
     Route: 048
     Dates: start: 20120713
  2. COUMADIN (WARFARIN SODIUM) (UNKNOWN) [Concomitant]

REACTIONS (3)
  - Thrombosis [None]
  - Diarrhoea [None]
  - Epistaxis [None]
